FAERS Safety Report 4465545-7 (Version None)
Quarter: 2004Q4

REPORT INFORMATION
  Report Type: 
  Country: None (occurrence: None)
  Receive Date: 20041004
  Receipt Date: 20040524
  Transmission Date: 20050328
  Serious: Yes (Hospitalization)
  Sender: FDA-Public Use
  Company Number: US-GLAXOSMITHKLINE-A0512350A

PATIENT
  Age: 40 Year
  Sex: Female
  Weight: 86.4 kg

DRUGS (9)
  1. IMITREX [Suspect]
     Indication: DRUG USE FOR UNKNOWN INDICATION
     Route: 045
  2. PREMARIN [Concomitant]
     Dosage: 1.25MG PER DAY
  3. DESYREL [Concomitant]
     Dosage: 100MG AT NIGHT
  4. LEVOTHROID [Concomitant]
  5. ZYRTEC [Concomitant]
  6. TYLENOL [Concomitant]
     Indication: MIGRAINE
  7. PHENERGAN HCL [Concomitant]
     Indication: MIGRAINE
  8. CLONAZEPAM [Concomitant]
     Dosage: 1MG THREE TIMES PER DAY
  9. EFFEXOR XR [Concomitant]

REACTIONS (3)
  - DIZZINESS [None]
  - HEMIPARESIS [None]
  - TRANSIENT ISCHAEMIC ATTACK [None]
